FAERS Safety Report 24740154 (Version 2)
Quarter: 2024Q4

REPORT INFORMATION
  Report Type: Report from Study
  Country: DE (occurrence: DE)
  Receive Date: 20241216
  Receipt Date: 20241223
  Transmission Date: 20250115
  Serious: No
  Sender: ROCHE
  Company Number: DE-ROCHE-3363331

PATIENT
  Age: 40 Year
  Sex: Male
  Weight: 78.0 kg

DRUGS (7)
  1. OCREVUS [Suspect]
     Active Substance: OCRELIZUMAB
     Indication: Relapsing multiple sclerosis
     Route: 042
     Dates: start: 20190903, end: 20190917
  2. OCREVUS [Suspect]
     Active Substance: OCRELIZUMAB
     Dosage: MOST RECENT DOSE PRIORI TO AE: 12/MAY/2023
     Route: 042
     Dates: start: 20200303
  3. IBUPROFEN [Concomitant]
     Active Substance: IBUPROFEN
     Indication: COVID-19
     Route: 048
     Dates: start: 20220316, end: 20220319
  4. AZITHROMYCIN [Concomitant]
     Active Substance: AZITHROMYCIN
     Indication: Cystitis
     Route: 048
     Dates: start: 20210701, end: 202107
  5. DIETARY SUPPLEMENT\HERBALS [Concomitant]
     Active Substance: DIETARY SUPPLEMENT\HERBALS
     Indication: Nasopharyngitis
     Route: 048
     Dates: start: 202303, end: 202303
  6. NASENTROPFEN (GERMANY) [Concomitant]
     Indication: Nasopharyngitis
     Route: 045
     Dates: start: 202303, end: 202303
  7. CEFPODOXIME [Concomitant]
     Active Substance: CEFPODOXIME
     Indication: Urinary tract infection
     Route: 048
     Dates: start: 20230512

REACTIONS (2)
  - Urinary tract infection [Recovered/Resolved]
  - Urinary tract infection [Not Recovered/Not Resolved]

NARRATIVE: CASE EVENT DATE: 20230220
